FAERS Safety Report 5035226-X (Version None)
Quarter: 2006Q2

REPORT INFORMATION
  Report Type: 
  Country: None (occurrence: None)
  Receive Date: 20060522
  Receipt Date: 20051013
  Transmission Date: 20061013
  Serious: Yes (Death)
  Sender: FDA-Public Use
  Company Number: 200509011

PATIENT
  Age: 66 Year
  Sex: Female

DRUGS (6)
  1. PROPINE [Suspect]
     Indication: GLAUCOMA
     Dosage: 2 DROP BID EYE
  2. TIMOPTIC [Concomitant]
  3. TRUSOFT [Concomitant]
  4. XALATAN [Concomitant]
  5. CARDIZEM [Concomitant]
  6. GLUCOTROL [Concomitant]

REACTIONS (2)
  - DRUG INEFFECTIVE [None]
  - VISION BLURRED [None]
